FAERS Safety Report 20503733 (Version 1)
Quarter: 2022Q1

REPORT INFORMATION
  Report Type: Spontaneous
  Country: US (occurrence: None)
  Receive Date: 20220221
  Receipt Date: 20220221
  Transmission Date: 20220423
  Serious: Yes (Hospitalization)
  Sender: FDA-Public Use
  Company Number: None

PATIENT
  Age: 62 Year
  Sex: Male
  Weight: 98.1 kg

DRUGS (1)
  1. EVUSHELD [Suspect]
     Active Substance: CILGAVIMAB\TIXAGEVIMAB
     Indication: COVID-19 prophylaxis
     Dosage: OTHER FREQUENCY : EVERY SIX MONTHS;?
     Route: 030
     Dates: start: 20220217, end: 20220217

REACTIONS (5)
  - Pyrexia [None]
  - Headache [None]
  - Pain [None]
  - Dyspnoea [None]
  - Post procedural complication [None]

NARRATIVE: CASE EVENT DATE: 20220218
